FAERS Safety Report 6802895-0 (Version None)
Quarter: 2010Q2

REPORT INFORMATION
  Report Type: 
  Country: None (occurrence: None)
  Receive Date: 20100628
  Receipt Date: 20100622
  Transmission Date: 20101027
  Serious: Yes (Death)
  Sender: FDA-Public Use
  Company Number: US-ASTRAZENECA-2010SE29588

PATIENT
  Age: 7 Year
  Sex: Male

DRUGS (3)
  1. SEROQUEL [Suspect]
     Route: 048
  2. SYMBYAX [Concomitant]
  3. ZYPREXA [Concomitant]

REACTIONS (1)
  - COMPLETED SUICIDE [None]
